FAERS Safety Report 9613316 (Version 1)
Quarter: 2013Q3

REPORT INFORMATION
  Report Type: Spontaneous
  Country: GB (occurrence: None)
  Receive Date: 20130926
  Receipt Date: 20130926
  Transmission Date: 20140515
  Serious: Yes (Other)
  Sender: FDA-Public Use
  Company Number: GAM-256-13-GB

PATIENT
  Sex: Female

DRUGS (1)
  1. OCTAGAM (HUMAN NORMAL IMMUNOGLOBULIN (IV) [Suspect]
     Indication: STIFF PERSON SYNDROME
     Dosage: INTRAVENOUS (NOT OTHERWISE SPECIFIED)
     Route: 042

REACTIONS (2)
  - Device related infection [None]
  - Suspected transmission of an infectious agent via product [None]
